FAERS Safety Report 9904206 (Version 2)
Quarter: 2014Q1

REPORT INFORMATION
  Report Type: Spontaneous
  Country: US (occurrence: US)
  Receive Date: 20140218
  Receipt Date: 20140317
  Transmission Date: 20141002
  Serious: No
  Sender: FDA-Public Use
  Company Number: US-009507513-1402USA005424

PATIENT
  Age: 73 Year
  Sex: Female

DRUGS (4)
  1. DULERA [Suspect]
     Indication: WHEEZING
     Dosage: USED ONE TIME
     Route: 055
     Dates: start: 20140131, end: 20140201
  2. DULERA [Suspect]
     Indication: ATYPICAL PNEUMONIA
  3. SERTRALINE HYDROCHLORIDE [Concomitant]
  4. CLARITIN [Concomitant]
     Dosage: UNK

REACTIONS (2)
  - Adverse drug reaction [Recovered/Resolved]
  - Urticaria [Recovered/Resolved]
